FAERS Safety Report 16015307 (Version 1)
Quarter: 2019Q1

REPORT INFORMATION
  Report Type: Spontaneous
  Country: GB (occurrence: GB)
  Receive Date: 20190228
  Receipt Date: 20190228
  Transmission Date: 20190418
  Serious: Yes (Hospitalization)
  Sender: FDA-Public Use
  Company Number: GB-TEVA-2019-GB-1015939

PATIENT
  Age: 26 Year
  Sex: Female

DRUGS (2)
  1. PHENTERMINE. [Suspect]
     Active Substance: PHENTERMINE
     Route: 048
     Dates: start: 201805, end: 201806
  2. FUROSEMIDE. [Suspect]
     Active Substance: FUROSEMIDE
     Indication: JOINT SWELLING
     Route: 048
     Dates: start: 201806, end: 201806

REACTIONS (3)
  - Acute kidney injury [Recovered/Resolved]
  - Seizure [Recovering/Resolving]
  - Accelerated hypertension [Recovering/Resolving]

NARRATIVE: CASE EVENT DATE: 20180727
